FAERS Safety Report 9303775 (Version 2)
Quarter: 2013Q3

REPORT INFORMATION
  Report Type: Spontaneous
  Country: US (occurrence: US)
  Receive Date: 20130522
  Receipt Date: 20130712
  Transmission Date: 20140515
  Serious: Yes (Other)
  Sender: FDA-Public Use
  Company Number: US-GLAXOSMITHKLINE-A1024176A

PATIENT
  Age: 74 Year
  Sex: Female

DRUGS (9)
  1. COREG [Suspect]
     Indication: CARDIAC DISORDER
     Dosage: 12.5MG TWICE PER DAY
     Route: 065
  2. ZOLOFT [Suspect]
     Indication: ANXIETY
     Dosage: 50MG PER DAY
  3. LIPITOR [Suspect]
     Indication: BLOOD CHOLESTEROL
     Dosage: 20MG PER DAY
  4. NEURONTIN [Suspect]
     Indication: DIABETIC NEUROPATHY
     Dosage: 600MG TWICE PER DAY
  5. LASIX [Concomitant]
  6. ALDACTONE [Concomitant]
  7. ZAROXOLYN [Concomitant]
     Indication: CARDIAC FAILURE CONGESTIVE
  8. ULORIC [Concomitant]
     Indication: GOUT
  9. OXYCODONE [Concomitant]
     Indication: ARTHRITIS

REACTIONS (3)
  - Breast cancer [Unknown]
  - Calcinosis [Unknown]
  - Drug administration error [Unknown]
